FAERS Safety Report 10233477 (Version 12)
Quarter: 2018Q1

REPORT INFORMATION
  Report Type: Report from Study
  Country: CA (occurrence: CA)
  Receive Date: 20140612
  Receipt Date: 20180314
  Transmission Date: 20180508
  Serious: Yes (Hospitalization, Other)
  Sender: FDA-Public Use
  Company Number: PHHY2009CA34061

PATIENT
  Age: 81 Year
  Sex: Male

DRUGS (8)
  1. SANDOSTATIN LAR DEPOT [Suspect]
     Active Substance: OCTREOTIDE ACETATE
     Dosage: 60 MG, EVERY 3 WEEKS
     Route: 030
     Dates: start: 20100401
  2. SANDOSTATIN LAR DEPOT [Suspect]
     Active Substance: OCTREOTIDE ACETATE
     Dosage: 40 MG, EVERY 3 WEEKS
     Route: 030
     Dates: start: 20091222, end: 20100312
  3. APO METOPROLOL [Concomitant]
     Indication: PRODUCT USED FOR UNKNOWN INDICATION
     Route: 065
  4. SANDOSTATIN LAR DEPOT [Suspect]
     Active Substance: OCTREOTIDE ACETATE
     Indication: SMALL INTESTINE CARCINOMA
     Dosage: 60 MG, EVERY 3 WEEKS
     Route: 030
     Dates: start: 20090812, end: 20091007
  5. COUMADIN [Concomitant]
     Active Substance: WARFARIN SODIUM
     Indication: PRODUCT USED FOR UNKNOWN INDICATION
     Dosage: 3 MG, QD
     Route: 065
  6. SANDOSTATIN LAR DEPOT [Suspect]
     Active Substance: OCTREOTIDE ACETATE
     Dosage: 30 MG, EVERY 3 WEEKS
     Route: 030
     Dates: start: 20091105, end: 20091126
  7. SANDOSTATIN [Suspect]
     Active Substance: OCTREOTIDE ACETATE
     Indication: SMALL INTESTINE CARCINOMA
     Dosage: UNK UNK, ONCE/SINGLE
     Route: 058
     Dates: start: 20090729, end: 20090729
  8. PRADAXA [Concomitant]
     Active Substance: DABIGATRAN ETEXILATE MESYLATE
     Indication: PRODUCT USED FOR UNKNOWN INDICATION
     Route: 065

REACTIONS (19)
  - Inappropriate schedule of drug administration [Unknown]
  - Abdominal pain [Unknown]
  - Chest X-ray abnormal [Unknown]
  - Speech disorder [Recovering/Resolving]
  - Blood pressure decreased [Unknown]
  - Back pain [Unknown]
  - Blood pressure systolic increased [Unknown]
  - Heart rate irregular [Unknown]
  - Intestinal obstruction [Unknown]
  - Dysarthria [Unknown]
  - Gastrointestinal disorder [Recovering/Resolving]
  - Cerebrovascular accident [Unknown]
  - Hemiparesis [Recovering/Resolving]
  - Tooth abscess [Unknown]
  - Scar [Unknown]
  - Dizziness [Unknown]
  - Facial paralysis [Unknown]
  - Renal mass [Unknown]
  - Fatigue [Recovering/Resolving]

NARRATIVE: CASE EVENT DATE: 20140422
